FAERS Safety Report 7107651-4 (Version None)
Quarter: 2010Q4

REPORT INFORMATION
  Report Type: 
  Country: None (occurrence: None)
  Receive Date: 20101117
  Receipt Date: 20101104
  Transmission Date: 20110411
  Serious: Yes (Hospitalization)
  Sender: FDA-Public Use
  Company Number: US-ELI_LILLY_AND_COMPANY-US201005006882

PATIENT
  Sex: Female

DRUGS (15)
  1. FORTEO [Suspect]
     Dosage: 20 UG, DAILY (1/D)
  2. ALDACTONE [Concomitant]
  3. ASPIRIN [Concomitant]
  4. DOCUSATE [Concomitant]
  5. CARVEDILOL [Concomitant]
  6. LOSARTAN [Concomitant]
  7. DIGOXIN [Concomitant]
  8. FUROSEMIDE [Concomitant]
  9. ATORVASTATIN [Concomitant]
  10. ENOXAPARIN SODIUM [Concomitant]
  11. NEXIUM [Concomitant]
  12. RESTORIL [Concomitant]
  13. VITAMIN D [Concomitant]
  14. CALCIUM [Concomitant]
  15. XANAX [Concomitant]

REACTIONS (1)
  - CARDIAC FAILURE CONGESTIVE [None]
